FAERS Safety Report 13593276 (Version 1)
Quarter: 2017Q2

REPORT INFORMATION
  Report Type: Report from Study
  Country: None (occurrence: NL)
  Receive Date: 20170530
  Receipt Date: 20170530
  Transmission Date: 20170830
  Serious: Yes (Death)
  Sender: FDA-Public Use
  Company Number: NL-ABBVIE-17P-114-1990348-00

PATIENT
  Age: 67 Year
  Sex: Male

DRUGS (4)
  1. MORFINE [Concomitant]
     Active Substance: MORPHINE
     Indication: PRODUCT USED FOR UNKNOWN INDICATION
     Route: 058
  2. LUCRIN DEPOT [Suspect]
     Active Substance: LEUPROLIDE ACETATE
     Indication: PROSTATE CANCER
     Route: 050
     Dates: start: 20120919
  3. MORFINE [Concomitant]
     Active Substance: MORPHINE
     Dosage: ACCORDING TO SPECIFICATIONS
     Route: 058
  4. SODIUM PHOSPHATE CLYSTER [Concomitant]
     Indication: PRODUCT USED FOR UNKNOWN INDICATION
     Route: 054

REACTIONS (1)
  - Death [Fatal]

NARRATIVE: CASE EVENT DATE: 20170404
